FAERS Safety Report 16740226 (Version 1)
Quarter: 2019Q3

REPORT INFORMATION
  Report Type: Spontaneous
  Country: NL (occurrence: NL)
  Receive Date: 20190826
  Receipt Date: 20190826
  Transmission Date: 20191005
  Serious: Yes (Hospitalization)
  Sender: FDA-Public Use
  Company Number: NL-009507513-1908NLD007310

PATIENT
  Age: 54 Year
  Sex: Female
  Weight: 70 kg

DRUGS (2)
  1. KEYTRUDA [Suspect]
     Active Substance: PEMBROLIZUMAB
     Indication: OVARIAN CANCER STAGE IV
     Dosage: 200MG (STRENGTH: 25 MG/ML)
     Route: 042
     Dates: start: 20190419
  2. CISPLATIN. [Suspect]
     Active Substance: CISPLATIN
     Indication: OVARIAN CANCER STAGE IV
     Dosage: STRENGTH: 1 MG/ML
     Dates: start: 20190628

REACTIONS (3)
  - Urogenital fistula [Recovering/Resolving]
  - Gastrointestinal anastomotic leak [Recovering/Resolving]
  - Post procedural bile leak [Recovering/Resolving]

NARRATIVE: CASE EVENT DATE: 20190708
